FAERS Safety Report 24352544 (Version 1)
Quarter: 2024Q3

REPORT INFORMATION
  Report Type: Spontaneous
  Country: US (occurrence: US)
  Receive Date: 20240923
  Receipt Date: 20240923
  Transmission Date: 20241016
  Serious: No
  Sender: BAYER
  Company Number: US-BAYER-2024A132437

PATIENT
  Sex: Female

DRUGS (2)
  1. MIRENA [Suspect]
     Active Substance: LEVONORGESTREL
     Indication: Blood loss anaemia
     Dosage: 20?G/DAY
     Route: 015
     Dates: start: 202310, end: 2024
  2. MIRENA [Suspect]
     Active Substance: LEVONORGESTREL
     Indication: Abnormal uterine bleeding

REACTIONS (11)
  - Headache [None]
  - Eye pain [None]
  - Heavy menstrual bleeding [None]
  - Dysmenorrhoea [None]
  - Genital haemorrhage [None]
  - Abdominal pain lower [None]
  - Device expulsion [Recovered/Resolved]
  - Depression [None]
  - Weight loss poor [None]
  - Lethargy [None]
  - Blood pressure increased [None]

NARRATIVE: CASE EVENT DATE: 20240101
